FAERS Safety Report 18957273 (Version 3)
Quarter: 2021Q2

REPORT INFORMATION
  Report Type: Other
  Country: US (occurrence: US)
  Receive Date: 20210302
  Receipt Date: 20210422
  Transmission Date: 20210717
  Serious: Yes (Hospitalization, Other)
  Sender: FDA-Public Use
  Company Number: US-ROCHE-2778892

PATIENT
  Age: 63 Year
  Sex: Female
  Weight: 79.45 kg

DRUGS (29)
  1. ALBUTEROL HFA [Concomitant]
     Active Substance: ALBUTEROL SULFATE
  2. VITAMIN A [Concomitant]
     Active Substance: VITAMIN A
  3. TYLENOL [Concomitant]
     Active Substance: ACETAMINOPHEN
  4. AMLODIPINE [Concomitant]
     Active Substance: AMLODIPINE BESYLATE
     Dates: start: 20190911
  5. DIAZEPAM. [Concomitant]
     Active Substance: DIAZEPAM
  6. MAGNESIUM [Concomitant]
     Active Substance: MAGNESIUM
  7. ZINC. [Concomitant]
     Active Substance: ZINC
  8. FOSAMAX [Concomitant]
     Active Substance: ALENDRONATE SODIUM
  9. HYDROCHLOROTHIAZIDE. [Concomitant]
     Active Substance: HYDROCHLOROTHIAZIDE
     Dates: start: 20190911
  10. MESALAMINE. [Concomitant]
     Active Substance: MESALAMINE
  11. CARISOPRODOL. [Concomitant]
     Active Substance: CARISOPRODOL
  12. MONTELUKAST [Concomitant]
     Active Substance: MONTELUKAST SODIUM
  13. MUCINEX [Concomitant]
     Active Substance: GUAIFENESIN
  14. AMLODIPINE [Concomitant]
     Active Substance: AMLODIPINE BESYLATE
     Dates: start: 20190822
  15. ROSUVASTATIN. [Concomitant]
     Active Substance: ROSUVASTATIN
  16. NICOTINAMIDE [Concomitant]
     Active Substance: NIACINAMIDE
  17. YUVAFEM [Concomitant]
     Active Substance: ESTRADIOL HEMIHYDRATE
  18. ALVESCO [Concomitant]
     Active Substance: CICLESONIDE
  19. FISH OIL OMEGA 3 [Concomitant]
     Active Substance: FISH OIL
  20. TRAMADOL. [Concomitant]
     Active Substance: TRAMADOL
  21. XOLAIR [Suspect]
     Active Substance: OMALIZUMAB
     Route: 058
     Dates: end: 202003
  22. ALLEGRA [Concomitant]
     Active Substance: FEXOFENADINE HYDROCHLORIDE
  23. STIOLTO RESPIMAT [Concomitant]
     Active Substance: OLODATEROL HYDROCHLORIDE\TIOTROPIUM BROMIDE MONOHYDRATE
  24. ALLEGRA?D [Suspect]
     Active Substance: FEXOFENADINE HYDROCHLORIDE\PSEUDOEPHEDRINE HYDROCHLORIDE
     Indication: HYPERSENSITIVITY
     Route: 048
     Dates: end: 20190716
  25. PANTOPRAZOLE [Concomitant]
     Active Substance: PANTOPRAZOLE
  26. VITAMIN C [Concomitant]
     Active Substance: ASCORBIC ACID
  27. XOLAIR [Suspect]
     Active Substance: OMALIZUMAB
     Indication: ASTHMA
     Route: 058
     Dates: end: 201907
  28. ESTRADIOL. [Suspect]
     Active Substance: ESTRADIOL
     Indication: MENOPAUSE
     Route: 048
  29. CLOPIDOGREL [Concomitant]
     Active Substance: CLOPIDOGREL BISULFATE

REACTIONS (11)
  - Foot fracture [Recovered/Resolved]
  - Ischaemic stroke [Not Recovered/Not Resolved]
  - Spinal cord disorder [Not Recovered/Not Resolved]
  - Osteoporosis [Not Recovered/Not Resolved]
  - Memory impairment [Not Recovered/Not Resolved]
  - Anxiety [Not Recovered/Not Resolved]
  - Paraesthesia [Not Recovered/Not Resolved]
  - Grip strength decreased [Not Recovered/Not Resolved]
  - Hypertension [Not Recovered/Not Resolved]
  - Cerebral atrophy [Not Recovered/Not Resolved]
  - Body height decreased [Recovered/Resolved]

NARRATIVE: CASE EVENT DATE: 2009
